FAERS Safety Report 24765411 (Version 1)
Quarter: 2024Q4

REPORT INFORMATION
  Report Type: Spontaneous
  Country: PL (occurrence: PL)
  Receive Date: 20241223
  Receipt Date: 20241223
  Transmission Date: 20250115
  Serious: Yes (Other)
  Sender: ACCORD
  Company Number: PL-MLMSERVICE-20241206-PI282320-00117-1

PATIENT
  Age: 4 Year
  Sex: Male

DRUGS (6)
  1. ETOPOSIDE [Suspect]
     Active Substance: ETOPOSIDE
     Indication: CTLA4 deficiency
  2. DEXAMETHASONE SODIUM PHOSPHATE [Suspect]
     Active Substance: DEXAMETHASONE SODIUM PHOSPHATE
     Indication: CTLA4 deficiency
  3. CYCLOSPORINE [Suspect]
     Active Substance: CYCLOSPORINE
     Indication: CTLA4 deficiency
  4. CYCLOSPORINE [Suspect]
     Active Substance: CYCLOSPORINE
     Indication: Immunosuppressant drug therapy
  5. DEXAMETHASONE SODIUM PHOSPHATE [Suspect]
     Active Substance: DEXAMETHASONE SODIUM PHOSPHATE
     Indication: Immunosuppressant drug therapy
  6. ETOPOSIDE [Suspect]
     Active Substance: ETOPOSIDE
     Indication: Immunosuppressant drug therapy

REACTIONS (4)
  - Renal failure [Unknown]
  - N-terminal prohormone brain natriuretic peptide increased [Unknown]
  - Cytomegalovirus infection [Recovered/Resolved]
  - Off label use [Unknown]
